FAERS Safety Report 9867656 (Version 2)
Quarter: 2014Q1

REPORT INFORMATION
  Report Type: Spontaneous
  Country: US (occurrence: US)
  Receive Date: 20140204
  Receipt Date: 20140204
  Transmission Date: 20141002
  Serious: Yes (Death)
  Sender: FDA-Public Use
  Company Number: US-PFIZER INC-2006088829

PATIENT
  Age: 66 Year
  Sex: Female

DRUGS (1)
  1. NORVASC [Suspect]
     Indication: HYPERTENSION
     Dosage: 60 DF, UNK

REACTIONS (3)
  - Overdose [Fatal]
  - Completed suicide [Fatal]
  - Toxicity to various agents [Fatal]
